FAERS Safety Report 8510471-7 (Version None)
Quarter: 2012Q3

REPORT INFORMATION
  Report Type: 
  Country: None (occurrence: None)
  Receive Date: 20120715
  Receipt Date: 20120706
  Transmission Date: 20120928
  Serious: Yes (Other)
  Sender: FDA-Public Use
  Company Number: US-009507513-1207USA002262

PATIENT

DRUGS (2)
  1. JANUVIA [Suspect]
     Route: 048
  2. METFORMIN HYDROCHLORIDE [Concomitant]

REACTIONS (1)
  - PANCREATIC CARCINOMA [None]
